FAERS Safety Report 4277357-8 (Version None)
Quarter: 2004Q1

REPORT INFORMATION
  Report Type: 
  Country: None (occurrence: None)
  Receive Date: 20040122
  Receipt Date: 20040116
  Transmission Date: 20041129
  Serious: Yes (Other)
  Sender: FDA-Public Use
  Company Number: PHNU2004DE00568

PATIENT
  Sex: Male

DRUGS (3)
  1. TRILEPTAL [Suspect]
     Dates: start: 20030801
  2. METOPROLOL - SLOW RELEASE [Concomitant]
     Dates: start: 20030101
  3. DELIX [Concomitant]
     Dates: start: 20030101

REACTIONS (1)
  - ELECTROCARDIOGRAM QT PROLONGED [None]
